FAERS Safety Report 25248821 (Version 2)
Quarter: 2025Q2

REPORT INFORMATION
  Report Type: Spontaneous
  Country: FR (occurrence: FR)
  Receive Date: 20250429
  Receipt Date: 20250509
  Transmission Date: 20250717
  Serious: Yes (Other)
  Sender: TEVA
  Company Number: FR-TEVA-VS-3324901

PATIENT
  Age: 43 Year
  Sex: Female

DRUGS (10)
  1. CAPECITABINE [Suspect]
     Active Substance: CAPECITABINE
     Indication: Colorectal cancer metastatic
     Route: 048
  2. OXALIPLATIN [Interacting]
     Active Substance: OXALIPLATIN
     Indication: Colorectal cancer metastatic
     Dosage: EVERY 14 DAYS
     Route: 042
     Dates: start: 202312, end: 202312
  3. FLUOROURACIL [Interacting]
     Active Substance: FLUOROURACIL
     Indication: Colorectal cancer metastatic
     Dosage: EVERY 14 DAYS
     Route: 042
     Dates: start: 202312, end: 202312
  4. IRINOTECAN [Interacting]
     Active Substance: IRINOTECAN
     Indication: Colorectal cancer metastatic
     Dosage: EVERY 14 DAYS
     Route: 042
     Dates: start: 202312, end: 202312
  5. ACETAMINOPHEN [Concomitant]
     Active Substance: ACETAMINOPHEN
     Indication: Analgesic therapy
     Route: 048
  6. ENOXAPARIN [Concomitant]
     Active Substance: ENOXAPARIN
     Indication: Anticoagulant therapy
     Route: 065
     Dates: start: 20231116, end: 20231121
  7. TRAMADOL [Concomitant]
     Active Substance: TRAMADOL
     Indication: Analgesic therapy
     Route: 048
  8. HERBALS [Concomitant]
     Active Substance: HERBALS
     Indication: Supplementation therapy
     Route: 065
  9. FLUTICASONE [Concomitant]
     Active Substance: FLUTICASONE
     Indication: Rhinitis allergic
     Route: 045
  10. LEUCOVORIN [Interacting]
     Active Substance: LEUCOVORIN\LEUCOVORIN CALCIUM
     Indication: Colorectal cancer metastatic
     Dosage: EVERY 14 DAYS
     Route: 042
     Dates: start: 202312, end: 202312

REACTIONS (4)
  - Hepatic cytolysis [Recovering/Resolving]
  - Cholestasis [Recovering/Resolving]
  - Drug ineffective [Unknown]
  - Drug interaction [Unknown]
